FAERS Safety Report 14008074 (Version 1)
Quarter: 2017Q3

REPORT INFORMATION
  Report Type: Spontaneous
  Country: US (occurrence: None)
  Receive Date: 20170924
  Receipt Date: 20170924
  Transmission Date: 20171128
  Serious: No
  Sender: FDA-Public Use
  Company Number: None

PATIENT
  Age: 71 Year
  Sex: Male

DRUGS (1)
  1. NEULASTA [Suspect]
     Active Substance: PEGFILGRASTIM

REACTIONS (4)
  - Fatigue [None]
  - Red blood cell count decreased [None]
  - Pyrexia [None]
  - White blood cell analysis abnormal [None]

NARRATIVE: CASE EVENT DATE: 20170924
